FAERS Safety Report 19225839 (Version 1)
Quarter: 2021Q2

REPORT INFORMATION
  Report Type: Spontaneous
  Country: US (occurrence: US)
  Receive Date: 20210505
  Receipt Date: 20210505
  Transmission Date: 20210717
  Serious: No
  Sender: FDA-Public Use
  Company Number: US-ROCHE-2646905

PATIENT
  Sex: Female
  Weight: 73.2 kg

DRUGS (2)
  1. MVASI [Concomitant]
     Active Substance: BEVACIZUMAB-AWWB
     Indication: ENDOMETRIAL CANCER
     Route: 042
     Dates: start: 20200401
  2. AVASTIN [Suspect]
     Active Substance: BEVACIZUMAB
     Indication: ENDOMETRIAL CANCER
     Route: 042
     Dates: start: 201912, end: 202003

REACTIONS (3)
  - Intentional product use issue [Unknown]
  - Off label use [Unknown]
  - No adverse event [Unknown]
